FAERS Safety Report 25932013 (Version 2)
Quarter: 2025Q4

REPORT INFORMATION
  Report Type: Spontaneous
  Country: US (occurrence: US)
  Receive Date: 20251016
  Receipt Date: 20251023
  Transmission Date: 20260117
  Serious: Yes (Hospitalization, Other)
  Sender: ELI LILLY AND COMPANY
  Company Number: US-ELI_LILLY_AND_COMPANY-US202510012861

PATIENT
  Age: 73 Year
  Sex: Female

DRUGS (5)
  1. HUMALOG [Suspect]
     Active Substance: INSULIN LISPRO
     Indication: Product used for unknown indication
     Dosage: UNK UNK, UNKNOWN
     Route: 065
     Dates: start: 2007
  2. TUMS [Concomitant]
     Active Substance: CALCIUM CARBONATE
     Indication: Product used for unknown indication
  3. LANTUS [Concomitant]
     Active Substance: INSULIN GLARGINE
     Indication: Product used for unknown indication
  4. TYLENOL [Concomitant]
     Active Substance: ACETAMINOPHEN
     Indication: Product used for unknown indication
  5. NOVOLOG [Concomitant]
     Active Substance: INSULIN ASPART
     Indication: Product used for unknown indication

REACTIONS (43)
  - Blood glucose increased [Unknown]
  - Deafness unilateral [Unknown]
  - Seizure [Unknown]
  - Loss of consciousness [Unknown]
  - Diabetic retinopathy [Unknown]
  - Diabetic neuropathy [Unknown]
  - Encephalitis [Unknown]
  - Hypertension [Unknown]
  - Fibromyalgia [Unknown]
  - Osteoarthritis [Unknown]
  - Limb injury [Unknown]
  - Mobility decreased [Unknown]
  - Feeding disorder [Unknown]
  - Thyroid disorder [Unknown]
  - Feeling abnormal [Unknown]
  - Musculoskeletal stiffness [Unknown]
  - Pain in extremity [Unknown]
  - Renal disorder [Unknown]
  - Eructation [Unknown]
  - Psoriasis [Unknown]
  - Stress [Unknown]
  - Arthritis [Unknown]
  - Psoriatic arthropathy [Unknown]
  - Rheumatoid arthritis [Unknown]
  - Burning sensation [Unknown]
  - Chest pain [Unknown]
  - Oropharyngeal pain [Unknown]
  - Vertigo [Unknown]
  - Gait disturbance [Unknown]
  - Epistaxis [Unknown]
  - Balance disorder [Unknown]
  - Hypoaesthesia oral [Unknown]
  - Multiple allergies [Unknown]
  - Dyspnoea [Unknown]
  - Ear discomfort [Unknown]
  - Dysphagia [Unknown]
  - Pain [Unknown]
  - Nausea [Unknown]
  - Abdominal pain upper [Unknown]
  - Swelling face [Unknown]
  - Blood glucose decreased [Unknown]
  - Pruritus [Unknown]
  - Urticaria [Unknown]

NARRATIVE: CASE EVENT DATE: 20200301
